FAERS Safety Report 18831168 (Version 1)
Quarter: 2021Q1

REPORT INFORMATION
  Report Type: Spontaneous
  Country: US (occurrence: US)
  Receive Date: 20210203
  Receipt Date: 20210203
  Transmission Date: 20210419
  Serious: Yes (Other)
  Sender: FDA-Public Use
  Company Number: US-SA-2021SA022897

PATIENT
  Age: 52 Year

DRUGS (1)
  1. ZANTAC [Suspect]
     Active Substance: RANITIDINE HYDROCHLORIDE
     Dosage: 75 MG, QD
     Dates: start: 200601, end: 201901

REACTIONS (2)
  - Lung neoplasm malignant [Unknown]
  - Breast cancer [Unknown]

NARRATIVE: CASE EVENT DATE: 20080101
